FAERS Safety Report 7254825-8 (Version None)
Quarter: 2011Q1

REPORT INFORMATION
  Report Type: 
  Country: None (occurrence: None)
  Receive Date: 20110129
  Receipt Date: 20100402
  Transmission Date: 20110831
  Serious: No
  Sender: FDA-Public Use
  Company Number: US-ABBOTT-10P-163-0636154-00

PATIENT
  Sex: Female

DRUGS (2)
  1. HUMIRA [Suspect]
     Indication: RHEUMATOID ARTHRITIS
     Dates: start: 20040101, end: 20060101
  2. HUMIRA [Suspect]
     Dosage: PEN
     Dates: start: 20060101

REACTIONS (2)
  - INJECTION SITE HAEMATOMA [None]
  - CONTUSION [None]
